FAERS Safety Report 7108308-6 (Version None)
Quarter: 2010Q4

REPORT INFORMATION
  Report Type: 
  Country: None (occurrence: None)
  Receive Date: 20101117
  Receipt Date: 20101115
  Transmission Date: 20110411
  Serious: Yes (Other)
  Sender: FDA-Public Use
  Company Number: A0892455A

PATIENT
  Age: 61 Year
  Sex: Female

DRUGS (1)
  1. GAVISCON [Suspect]
     Dates: start: 20101111, end: 20101111

REACTIONS (4)
  - BACK PAIN [None]
  - GASTROINTESTINAL HAEMORRHAGE [None]
  - PAIN [None]
  - RECTAL HAEMORRHAGE [None]
